FAERS Safety Report 23938692 (Version 2)
Quarter: 2024Q3

REPORT INFORMATION
  Report Type: Spontaneous
  Country: DE (occurrence: DE)
  Receive Date: 20240604
  Receipt Date: 20240723
  Transmission Date: 20241017
  Serious: Yes (Other)
  Sender: MERCK
  Company Number: DE-009507513-2405DEU009454

PATIENT
  Age: 43 Year
  Sex: Female

DRUGS (1)
  1. KEYTRUDA [Suspect]
     Active Substance: PEMBROLIZUMAB
     Indication: Metastatic malignant melanoma
     Dosage: 200 MILLIGRAM, QOW
     Route: 042
     Dates: start: 20230218, end: 202405

REACTIONS (2)
  - Pulmonary tuberculosis [Not Recovered/Not Resolved]
  - Inappropriate schedule of product administration [Unknown]

NARRATIVE: CASE EVENT DATE: 20230218
